FAERS Safety Report 6217042-6 (Version None)
Quarter: 2009Q2

REPORT INFORMATION
  Report Type: 
  Country: None (occurrence: None)
  Receive Date: 20090606
  Receipt Date: 20090529
  Transmission Date: 20091009
  Serious: Yes (Other)
  Sender: FDA-Public Use
  Company Number: US-SANOFI-SYNTHELABO-A03200902346

PATIENT
  Age: 79 Year
  Sex: Male

DRUGS (1)
  1. PLAVIX [Suspect]
     Indication: TRIGEMINAL NEURALGIA
     Route: 048
     Dates: start: 20070201, end: 20070701

REACTIONS (1)
  - THROMBOSIS [None]
